FAERS Safety Report 4448411-2 (Version None)
Quarter: 2004Q3

REPORT INFORMATION
  Report Type: 
  Country: None (occurrence: None)
  Receive Date: 20040730
  Receipt Date: 20040422
  Transmission Date: 20050211
  Serious: Yes (Other)
  Sender: FDA-Public Use
  Company Number: 2004-04-1373

PATIENT
  Sex: Female

DRUGS (1)
  1. INTRON A [Suspect]

REACTIONS (1)
  - RADICULOPATHY [None]
